FAERS Safety Report 9523549 (Version 2)
Quarter: 2013Q4

REPORT INFORMATION
  Report Type: Spontaneous
  Country: GB (occurrence: GB)
  Receive Date: 20130913
  Receipt Date: 20131231
  Transmission Date: 20140711
  Serious: Yes (Other)
  Sender: FDA-Public Use
  Company Number: GB-ASTRAZENECA-2013SE67772

PATIENT
  Age: 72 Year
  Sex: Female
  Weight: 68 kg

DRUGS (3)
  1. FELODIPINE [Suspect]
     Indication: HYPERTENSION
     Route: 048
     Dates: start: 20100101
  2. FELODIPINE [Suspect]
     Indication: HYPERTENSION
     Route: 048
     Dates: end: 20130601
  3. ANASTROZOLE [Concomitant]

REACTIONS (11)
  - Cough [Unknown]
  - Depressed mood [Unknown]
  - Drooling [Recovered/Resolved with Sequelae]
  - Oesophageal spasm [Unknown]
  - Rhinorrhoea [Recovered/Resolved with Sequelae]
  - Suicidal ideation [Unknown]
  - Throat tightness [Recovered/Resolved with Sequelae]
  - Lacrimation increased [Recovered/Resolved with Sequelae]
  - Wheezing [Unknown]
  - Salivary hypersecretion [Recovered/Resolved with Sequelae]
  - Hypersensitivity [Recovered/Resolved with Sequelae]
